FAERS Safety Report 10242535 (Version 1)
Quarter: 2014Q2

REPORT INFORMATION
  Report Type: Spontaneous
  Country: US (occurrence: US)
  Receive Date: 20140617
  Receipt Date: 20140617
  Transmission Date: 20141212
  Serious: No
  Sender: FDA-Public Use
  Company Number: US-TEVA-489142USA

PATIENT
  Age: 31 Year
  Sex: Female
  Weight: 55.39 kg

DRUGS (3)
  1. PLAN B ONE-STEP [Suspect]
     Indication: POST COITAL CONTRACEPTION
     Route: 048
     Dates: start: 20140527, end: 20140527
  2. LAMICTAL [Concomitant]
     Indication: BIPOLAR DISORDER
  3. SEROQUEL [Concomitant]
     Indication: INSOMNIA

REACTIONS (1)
  - Menstruation irregular [Not Recovered/Not Resolved]
